FAERS Safety Report 18777047 (Version 1)
Quarter: 2021Q1

REPORT INFORMATION
  Report Type: Spontaneous
  Country: US (occurrence: US)
  Receive Date: 20210122
  Receipt Date: 20210122
  Transmission Date: 20210419
  Serious: Yes (Life-Threatening, Hospitalization, Other)
  Sender: FDA-Public Use
  Company Number: US-TEVA-2021-US-1869852

PATIENT
  Age: 39 Year
  Sex: Male

DRUGS (5)
  1. AMIODARONE [Suspect]
     Active Substance: AMIODARONE
     Indication: CHRONIC LEFT VENTRICULAR FAILURE
     Route: 065
  2. METHIMAZOLE. [Suspect]
     Active Substance: METHIMAZOLE
     Indication: HYPERTHYROIDISM
     Dosage: 80 MILLIGRAM DAILY;
     Route: 065
  3. HYDROCORTISONE. [Suspect]
     Active Substance: HYDROCORTISONE
     Indication: HYPERTHYROIDISM
     Dosage: 300 MILLIGRAM DAILY;
     Route: 065
  4. CHOLESTYRAMINE. [Suspect]
     Active Substance: CHOLESTYRAMINE
     Indication: HYPERTHYROIDISM
     Dosage: 8 GRAM DAILY;
     Route: 065
  5. PREDNISONE. [Suspect]
     Active Substance: PREDNISONE
     Indication: HYPERTHYROIDISM
     Route: 065

REACTIONS (6)
  - Treatment failure [Recovered/Resolved]
  - Hyperthyroidism [Recovered/Resolved]
  - Multiple organ dysfunction syndrome [Unknown]
  - Thyrotoxic crisis [Recovered/Resolved]
  - Cardiac failure [Unknown]
  - Cardiogenic shock [Unknown]
